FAERS Safety Report 5964545-5 (Version None)
Quarter: 2008Q4

REPORT INFORMATION
  Report Type: 
  Country: None (occurrence: None)
  Receive Date: 20081121
  Receipt Date: 20081121
  Transmission Date: 20090506
  Serious: Yes (Other)
  Sender: FDA-Public Use
  Company Number: None

PATIENT
  Age: 22 Year
  Sex: Female
  Weight: 65.7716 kg

DRUGS (2)
  1. SINGULAIR [Suspect]
     Indication: ASTHMA
     Dosage: 10MG  ONCE A DAY PO
     Route: 048
     Dates: start: 20040715, end: 20080815
  2. SINGULAIR [Suspect]
     Indication: MULTIPLE ALLERGIES
     Dosage: 10MG  ONCE A DAY PO
     Route: 048
     Dates: start: 20040715, end: 20080815

REACTIONS (7)
  - ANXIETY [None]
  - DEPRESSION [None]
  - FEAR [None]
  - MOOD SWINGS [None]
  - NIGHT SWEATS [None]
  - PANIC ATTACK [None]
  - SLEEP TERROR [None]
